FAERS Safety Report 5413461-6 (Version None)
Quarter: 2007Q3

REPORT INFORMATION
  Report Type: 
  Country: None (occurrence: None)
  Receive Date: 20070809
  Receipt Date: 20070809
  Transmission Date: 20080115
  Serious: No
  Sender: FDA-Public Use
  Company Number: None

PATIENT

DRUGS (1)
  1. PLAVIX [Suspect]

REACTIONS (2)
  - PLATELET COUNT DECREASED [None]
  - SKIN DISORDER [None]
